FAERS Safety Report 11172794 (Version 2)
Quarter: 2015Q4

REPORT INFORMATION
  Report Type: Spontaneous
  Country: None (occurrence: US)
  Receive Date: 20150608
  Receipt Date: 20151002
  Transmission Date: 20160304
  Serious: No
  Sender: FDA-Public Use
  Company Number: US-TOLMAR INC.-1039882

PATIENT
  Age: 65 Year
  Sex: Male
  Weight: 66.36 kg

DRUGS (1)
  1. KETOCONAZOLE. [Suspect]
     Active Substance: KETOCONAZOLE
     Route: 061

REACTIONS (4)
  - Eye pain [None]
  - Scleral disorder [None]
  - Dry eye [Not Recovered/Not Resolved]
  - Scleral discolouration [None]

NARRATIVE: CASE EVENT DATE: 20141018
